FAERS Safety Report 20327424 (Version 1)
Quarter: 2022Q1

REPORT INFORMATION
  Report Type: Spontaneous
  Country: US (occurrence: None)
  Receive Date: 20220111
  Receipt Date: 20220111
  Transmission Date: 20220423
  Serious: Yes (Life-Threatening, Hospitalization)
  Sender: FDA-Public Use
  Company Number: None

PATIENT
  Age: 73 Year
  Sex: Female
  Weight: 76.2 kg

DRUGS (1)
  1. PRIVIGEN [Suspect]
     Active Substance: HUMAN IMMUNOGLOBULIN G
     Dosage: OTHER FREQUENCY : EVERY 4 WEEKS;?
     Route: 042

REACTIONS (5)
  - Pruritus [None]
  - Ear pruritus [None]
  - Wheezing [None]
  - Cough [None]
  - Rash macular [None]

NARRATIVE: CASE EVENT DATE: 20220110
